FAERS Safety Report 25090023 (Version 1)
Quarter: 2025Q1

REPORT INFORMATION
  Report Type: Spontaneous
  Country: IN (occurrence: IN)
  Receive Date: 20250318
  Receipt Date: 20250318
  Transmission Date: 20250408
  Serious: Yes (Other)
  Sender: CHATTEM
  Company Number: IN-OPELLA-2024OHG027469

PATIENT
  Age: 28 Year
  Sex: Male

DRUGS (5)
  1. LEVOCETIRIZINE HYDROCHLORIDE [Suspect]
     Active Substance: LEVOCETIRIZINE HYDROCHLORIDE
     Indication: Urticaria
     Route: 065
  2. FEXOFENADINE HYDROCHLORIDE [Suspect]
     Active Substance: FEXOFENADINE HYDROCHLORIDE
     Indication: Urticaria
     Route: 065
  3. LORATADINE [Suspect]
     Active Substance: LORATADINE
     Indication: Urticaria
     Route: 065
  4. HYDROXYZINE [Suspect]
     Active Substance: HYDROXYZINE HYDROCHLORIDE
     Indication: Urticaria
     Route: 065
  5. CETIRIZINE [Suspect]
     Active Substance: CETIRIZINE HYDROCHLORIDE
     Indication: Urticaria
     Route: 065

REACTIONS (1)
  - Generalised bullous fixed drug eruption [Unknown]
